FAERS Safety Report 10032269 (Version 1)
Quarter: 2014Q1

REPORT INFORMATION
  Report Type: Report from Study
  Country: AR (occurrence: AR)
  Receive Date: 20140324
  Receipt Date: 20140324
  Transmission Date: 20141002
  Serious: Yes (Other)
  Sender: FDA-Public Use
  Company Number: PHHY2014AR033581

PATIENT
  Sex: Female

DRUGS (2)
  1. GILENYA [Suspect]
     Indication: MULTIPLE SCLEROSIS
     Dosage: UNK UKN, QD
     Route: 048
     Dates: start: 20130522, end: 201310
  2. GILENYA [Suspect]
     Dosage: UNK UKN, QD
     Route: 048
     Dates: start: 201310

REACTIONS (1)
  - Weight increased [Not Recovered/Not Resolved]
